FAERS Safety Report 8946481 (Version 2)
Quarter: 2013Q1

REPORT INFORMATION
  Report Type: Spontaneous
  Country: US (occurrence: US)
  Receive Date: 20121204
  Receipt Date: 20130204
  Transmission Date: 20140127
  Serious: No
  Sender: FDA-Public Use
  Company Number: US-AMGEN-USASP2012075823

PATIENT
  Age: 73 Year
  Sex: Male
  Weight: 69.39 kg

DRUGS (3)
  1. ENBREL [Suspect]
     Indication: PSORIASIS
     Dosage: 50 MG, QWK
     Route: 058
     Dates: start: 20110117
  2. ASPIRIN [Concomitant]
     Dosage: 81 MG, QD
     Route: 048
  3. TEMOVATE [Concomitant]
     Indication: PSORIASIS
     Dosage: 0.05 %, BID FOR 1-2 WEEKS PRN

REACTIONS (1)
  - Red blood cell count decreased [Not Recovered/Not Resolved]
